FAERS Safety Report 10739057 (Version 2)
Quarter: 2015Q2

REPORT INFORMATION
  Report Type: Spontaneous
  Country: GB (occurrence: GB)
  Receive Date: 20150126
  Receipt Date: 20150506
  Transmission Date: 20150821
  Serious: Yes (Hospitalization, Disabling, Other)
  Sender: FDA-Public Use
  Company Number: GB-TEVA-535973ISR

PATIENT
  Age: 15 Year
  Sex: Female
  Weight: 67 kg

DRUGS (11)
  1. AMITRIPTYLINE [Concomitant]
     Active Substance: AMITRIPTYLINE
  2. DOXORUBICIN [Concomitant]
     Active Substance: DOXORUBICIN
  3. METOCLOPRAMIDE. [Concomitant]
     Active Substance: METOCLOPRAMIDE
  4. MEPACT [Suspect]
     Active Substance: MIFAMURTIDE
     Indication: OSTEOSARCOMA
     Route: 042
     Dates: start: 20150103
  5. METHOTREXATE [Suspect]
     Active Substance: METHOTREXATE
     Indication: OSTEOSARCOMA
     Route: 042
     Dates: start: 20141226, end: 20141227
  6. CISPLATIN. [Concomitant]
     Active Substance: CISPLATIN
  7. CALCIUM FOLINATE [Concomitant]
     Active Substance: LEUCOVORIN CALCIUM
  8. NORETHISTERONE [Concomitant]
     Active Substance: NORETHINDRONE
  9. SODIUM BICARBONATE. [Concomitant]
     Active Substance: SODIUM BICARBONATE
  10. GABAPENTIN. [Concomitant]
     Active Substance: GABAPENTIN
  11. ONDANSETRON [Concomitant]
     Active Substance: ONDANSETRON

REACTIONS (16)
  - Encephalopathy [Recovered/Resolved]
  - Muscular weakness [Recovered/Resolved]
  - Pyrexia [Recovered/Resolved]
  - Chills [Recovered/Resolved]
  - Leukoencephalopathy [Recovered/Resolved]
  - Quadriplegia [Recovered/Resolved]
  - Hyperhidrosis [Recovered/Resolved]
  - Hemiparesis [Recovered/Resolved]
  - Paralysis [Recovered/Resolved]
  - Paresis [Recovered/Resolved]
  - Aphasia [Recovered/Resolved]
  - Confusional state [Recovered/Resolved]
  - Affect lability [Recovered/Resolved]
  - Febrile neutropenia [Recovered/Resolved]
  - Arthralgia [Recovered/Resolved]
  - Headache [Recovered/Resolved]

NARRATIVE: CASE EVENT DATE: 201501
